FAERS Safety Report 22059064 (Version 1)
Quarter: 2023Q1

REPORT INFORMATION
  Report Type: Report from Study
  Country: BR (occurrence: BR)
  Receive Date: 20230303
  Receipt Date: 20230303
  Transmission Date: 20230418
  Serious: Yes (Other)
  Sender: FDA-Public Use
  Company Number: BR-JNJFOC-20220656255

PATIENT
  Age: 52 Year
  Sex: Female
  Weight: 84 kg

DRUGS (5)
  1. INFLIXIMAB [Suspect]
     Active Substance: INFLIXIMAB
     Indication: Crohn^s disease
     Route: 041
  2. REMICADE [Suspect]
     Active Substance: INFLIXIMAB
     Indication: Crohn^s disease
     Route: 041
     Dates: start: 20180312
  3. INFLIXIMAB [Suspect]
     Active Substance: INFLIXIMAB
     Indication: Crohn^s disease
     Route: 065
  4. CLONAZEPAM [Concomitant]
     Active Substance: CLONAZEPAM
     Indication: Product used for unknown indication
     Route: 065
  5. SERTRALINE [Concomitant]
     Active Substance: SERTRALINE HYDROCHLORIDE
     Indication: Product used for unknown indication
     Route: 065

REACTIONS (9)
  - Thrombophlebitis [Unknown]
  - COVID-19 pneumonia [Unknown]
  - Anal fistula [Unknown]
  - Bronchitis [Recovered/Resolved]
  - Diarrhoea [Unknown]
  - Gastrointestinal pain [Unknown]
  - Hernia pain [Unknown]
  - Sensory loss [Unknown]
  - Memory impairment [Unknown]

NARRATIVE: CASE EVENT DATE: 20220522
